FAERS Safety Report 9321369 (Version 1)
Quarter: 2013Q2

REPORT INFORMATION
  Report Type: Spontaneous
  Country: JP (occurrence: None)
  Receive Date: 20130528
  Receipt Date: 20130528
  Transmission Date: 20140414
  Serious: Yes (Death, Other)
  Sender: FDA-Public Use
  Company Number: 2013P1006076

PATIENT
  Sex: Female
  Weight: 59 kg

DRUGS (5)
  1. CHLORPROMAZINE [Suspect]
  2. SERTRALINE [Suspect]
  3. ZOLPIDEM [Suspect]
  4. MIRTAZAPINE [Suspect]
  5. AMOXAPINE [Suspect]

REACTIONS (2)
  - Toxicity to various agents [None]
  - Completed suicide [None]
